FAERS Safety Report 6265938-1 (Version None)
Quarter: 2009Q3

REPORT INFORMATION
  Report Type: 
  Country: None (occurrence: None)
  Receive Date: 20090709
  Receipt Date: 20090709
  Transmission Date: 20100115
  Serious: Yes (Life-Threatening)
  Sender: FDA-Public Use
  Company Number: None

PATIENT
  Age: 53 Year
  Sex: Male
  Weight: 89 kg

DRUGS (2)
  1. METFORMIN HCL [Suspect]
  2. VALSARTAN [Suspect]

REACTIONS (6)
  - ACIDOSIS [None]
  - DIALYSIS [None]
  - HEAT STROKE [None]
  - HYPOPHAGIA [None]
  - LACTIC ACIDOSIS [None]
  - SOMNOLENCE [None]
